FAERS Safety Report 16123186 (Version 1)
Quarter: 2019Q1

REPORT INFORMATION
  Report Type: Spontaneous
  Country: IN (occurrence: IN)
  Receive Date: 20190327
  Receipt Date: 20190327
  Transmission Date: 20190418
  Serious: Yes (Life-Threatening, Disabling, Other)
  Sender: FDA-Public Use
  Company Number: IN-009507513-1903IND010530

PATIENT
  Age: 62 Year
  Sex: Male

DRUGS (2)
  1. RAMITORVA [Interacting]
     Active Substance: ASPIRIN\ATORVASTATIN CALCIUM\RAMIPRIL
     Dosage: UNK
  2. ISTAMET [Suspect]
     Active Substance: METFORMIN HYDROCHLORIDE\SITAGLIPTIN PHOSPHATE
     Dosage: UNK

REACTIONS (3)
  - General physical health deterioration [Unknown]
  - Drug interaction [Unknown]
  - Toxicity to various agents [Unknown]
